FAERS Safety Report 17306939 (Version 1)
Quarter: 2020Q1

REPORT INFORMATION
  Report Type: Spontaneous
  Country: GB (occurrence: GB)
  Receive Date: 20200123
  Receipt Date: 20200123
  Transmission Date: 20200409
  Serious: Yes (Life-Threatening, Hospitalization, Other)
  Sender: FDA-Public Use
  Company Number: GB-TEVA-2020-GB-1171637

PATIENT
  Age: 71 Year
  Sex: Male

DRUGS (5)
  1. STEROID [Concomitant]
     Active Substance: UNSPECIFIED INGREDIENT
  2. KEPPRA [Suspect]
     Active Substance: LEVETIRACETAM
     Indication: EPILEPSY
     Dosage: 1000 MILLIGRAM
     Route: 048
  3. RAMIPRIL. [Suspect]
     Active Substance: RAMIPRIL
     Dosage: 2.5 MILLIGRAM
     Route: 048
     Dates: end: 20190422
  4. FUROSEMIDE. [Suspect]
     Active Substance: FUROSEMIDE
     Dosage: IN THE MORNING 40 MILLIGRAM
     Route: 048
     Dates: end: 20190422
  5. OMEPRAZOLE. [Suspect]
     Active Substance: OMEPRAZOLE
     Indication: GASTROINTESTINAL DISORDER PROPHYLAXIS
     Dosage: IN THE MORNING 20 MILLIGRAM
     Route: 048
     Dates: end: 20190422

REACTIONS (5)
  - Blood sodium decreased [Unknown]
  - Hypotension [Unknown]
  - Hyponatraemia [Unknown]
  - Confusional state [Unknown]
  - Hypotension [Unknown]

NARRATIVE: CASE EVENT DATE: 20190422
